FAERS Safety Report 10333353 (Version 1)
Quarter: 2014Q3

REPORT INFORMATION
  Report Type: Spontaneous
  Country: JP (occurrence: JP)
  Receive Date: 20140722
  Receipt Date: 20140722
  Transmission Date: 20150326
  Serious: No
  Sender: FDA-Public Use
  Company Number: PHHY2014JP089260

PATIENT
  Age: 70 Year
  Sex: Female

DRUGS (3)
  1. GASTER [Concomitant]
     Active Substance: FAMOTIDINE
  2. TASIGNA [Suspect]
     Active Substance: NILOTINIB
     Indication: CHRONIC MYELOID LEUKAEMIA
     Dosage: 300 MG, DAILY
     Dates: start: 20131226, end: 20140130
  3. RIFAMPICIN [Concomitant]
     Active Substance: RIFAMPIN

REACTIONS (1)
  - Full blood count decreased [Not Recovered/Not Resolved]

NARRATIVE: CASE EVENT DATE: 201401
